FAERS Safety Report 24210370 (Version 7)
Quarter: 2025Q2

REPORT INFORMATION
  Report Type: Spontaneous
  Country: PL (occurrence: PL)
  Receive Date: 20240814
  Receipt Date: 20250628
  Transmission Date: 20250716
  Serious: Yes (Hospitalization, Other)
  Sender: NOVARTIS
  Company Number: None

PATIENT
  Age: 17 Year
  Sex: Female

DRUGS (81)
  1. TACROLIMUS [Suspect]
     Active Substance: TACROLIMUS
     Indication: Acute lymphocytic leukaemia
     Route: 065
  2. TACROLIMUS [Suspect]
     Active Substance: TACROLIMUS
     Indication: Philadelphia chromosome positive
  3. TACROLIMUS [Suspect]
     Active Substance: TACROLIMUS
     Indication: Graft versus host disease
  4. TACROLIMUS [Suspect]
     Active Substance: TACROLIMUS
     Indication: Epstein-Barr virus infection reactivation
  5. TACROLIMUS [Suspect]
     Active Substance: TACROLIMUS
     Indication: Immunosuppression
  6. TACROLIMUS [Suspect]
     Active Substance: TACROLIMUS
     Indication: Prophylaxis against transplant rejection
  7. RITUXIMAB [Suspect]
     Active Substance: RITUXIMAB
     Indication: Acute lymphocytic leukaemia
     Route: 065
  8. RITUXIMAB [Suspect]
     Active Substance: RITUXIMAB
     Indication: Philadelphia chromosome positive
     Dosage: 375 MG/M2, QW
     Route: 065
  9. RITUXIMAB [Suspect]
     Active Substance: RITUXIMAB
     Indication: Graft versus host disease
  10. RITUXIMAB [Suspect]
     Active Substance: RITUXIMAB
     Indication: Epstein-Barr virus infection reactivation
  11. RITUXIMAB [Suspect]
     Active Substance: RITUXIMAB
     Indication: Immunosuppression
  12. IMATINIB [Suspect]
     Active Substance: IMATINIB
     Indication: Acute lymphocytic leukaemia
     Route: 065
  13. IMATINIB [Suspect]
     Active Substance: IMATINIB
     Indication: Philadelphia chromosome positive
  14. IMATINIB [Suspect]
     Active Substance: IMATINIB
     Indication: Graft versus host disease
  15. IMATINIB [Suspect]
     Active Substance: IMATINIB
     Indication: Epstein-Barr virus infection reactivation
  16. IMATINIB [Suspect]
     Active Substance: IMATINIB
     Indication: Immunosuppression
  17. CYCLOSPORINE [Suspect]
     Active Substance: CYCLOSPORINE
     Indication: Acute lymphocytic leukaemia
     Route: 065
  18. CYCLOSPORINE [Suspect]
     Active Substance: CYCLOSPORINE
     Indication: Philadelphia chromosome positive
  19. CYCLOSPORINE [Suspect]
     Active Substance: CYCLOSPORINE
     Indication: Graft versus host disease
  20. CYCLOSPORINE [Suspect]
     Active Substance: CYCLOSPORINE
     Indication: Epstein-Barr virus infection reactivation
  21. CYCLOSPORINE [Suspect]
     Active Substance: CYCLOSPORINE
     Indication: Immunosuppression
  22. CYCLOSPORINE [Suspect]
     Active Substance: CYCLOSPORINE
     Indication: Prophylaxis against graft versus host disease
  23. FLUDARABINE [Suspect]
     Active Substance: FLUDARABINE PHOSPHATE
     Indication: Acute lymphocytic leukaemia
     Dosage: 30 MG/M2, QD (FOR 5 DAYS)
     Route: 042
  24. FLUDARABINE [Suspect]
     Active Substance: FLUDARABINE PHOSPHATE
     Indication: Philadelphia chromosome positive
     Route: 065
  25. FLUDARABINE [Suspect]
     Active Substance: FLUDARABINE PHOSPHATE
     Indication: Graft versus host disease
  26. FLUDARABINE [Suspect]
     Active Substance: FLUDARABINE PHOSPHATE
     Indication: Epstein-Barr virus infection reactivation
  27. FLUDARABINE [Suspect]
     Active Substance: FLUDARABINE PHOSPHATE
     Indication: Immunosuppression
  28. FLUDARABINE [Suspect]
     Active Substance: FLUDARABINE PHOSPHATE
     Indication: Bone marrow conditioning regimen
  29. FLUDARABINE [Suspect]
     Active Substance: FLUDARABINE PHOSPHATE
     Indication: Prophylaxis against transplant rejection
  30. TREOSULFAN [Suspect]
     Active Substance: TREOSULFAN
     Indication: Immunosuppression
     Route: 042
  31. TREOSULFAN [Suspect]
     Active Substance: TREOSULFAN
     Indication: Acute lymphocytic leukaemia
     Dosage: UNK UNK, QD (14 G/M2)
     Route: 042
  32. TREOSULFAN [Suspect]
     Active Substance: TREOSULFAN
     Indication: Philadelphia chromosome positive
     Route: 065
  33. TREOSULFAN [Suspect]
     Active Substance: TREOSULFAN
     Indication: Bone marrow conditioning regimen
     Route: 065
  34. TREOSULFAN [Suspect]
     Active Substance: TREOSULFAN
     Indication: Epstein-Barr virus infection reactivation
     Route: 065
  35. TREOSULFAN [Suspect]
     Active Substance: TREOSULFAN
     Indication: Graft versus host disease
  36. TREOSULFAN [Suspect]
     Active Substance: TREOSULFAN
     Indication: Prophylaxis against transplant rejection
  37. THYMOGLOBULINE [Suspect]
     Active Substance: LAPINE T-LYMPHOCYTE IMMUNE GLOBULIN
     Indication: Bone marrow conditioning regimen
     Route: 065
  38. THYMOGLOBULINE [Suspect]
     Active Substance: LAPINE T-LYMPHOCYTE IMMUNE GLOBULIN
     Indication: Lymphodepletion
  39. THYMOGLOBULINE [Suspect]
     Active Substance: LAPINE T-LYMPHOCYTE IMMUNE GLOBULIN
     Indication: Prophylaxis against transplant rejection
  40. THYMOCYTE IMMUNE GLOBULIN NOS [Suspect]
     Active Substance: THYMOCYTE IMMUNE GLOBULIN NOS
     Indication: Immunosuppression
     Route: 042
  41. THYMOCYTE IMMUNE GLOBULIN NOS [Suspect]
     Active Substance: THYMOCYTE IMMUNE GLOBULIN NOS
     Indication: Graft versus host disease
     Route: 065
  42. THYMOCYTE IMMUNE GLOBULIN NOS [Suspect]
     Active Substance: THYMOCYTE IMMUNE GLOBULIN NOS
     Indication: Epstein-Barr virus infection reactivation
     Route: 042
  43. THYMOCYTE IMMUNE GLOBULIN NOS [Suspect]
     Active Substance: THYMOCYTE IMMUNE GLOBULIN NOS
     Indication: Acute lymphocytic leukaemia
     Route: 065
  44. THYMOCYTE IMMUNE GLOBULIN NOS [Suspect]
     Active Substance: THYMOCYTE IMMUNE GLOBULIN NOS
     Indication: Philadelphia chromosome positive
     Route: 065
  45. THYMOCYTE IMMUNE GLOBULIN NOS [Suspect]
     Active Substance: THYMOCYTE IMMUNE GLOBULIN NOS
     Route: 065
  46. THYMOCYTE IMMUNE GLOBULIN NOS [Suspect]
     Active Substance: THYMOCYTE IMMUNE GLOBULIN NOS
     Route: 065
  47. COTRIMOXAZOLE [Concomitant]
     Active Substance: SULFAMETHOXAZOLE\TRIMETHOPRIM
     Indication: Cerebral toxoplasmosis
     Route: 065
  48. COTRIMOXAZOLE [Concomitant]
     Active Substance: SULFAMETHOXAZOLE\TRIMETHOPRIM
     Indication: Infection prophylaxis
     Route: 065
  49. COTRIMOXAZOLE [Concomitant]
     Active Substance: SULFAMETHOXAZOLE\TRIMETHOPRIM
     Indication: Prophylaxis
     Dosage: 15 MG/KG, QD (THREE TIMES WEEKLY FROM DAY +28)
     Route: 065
  50. COTRIMOXAZOLE [Concomitant]
     Active Substance: SULFAMETHOXAZOLE\TRIMETHOPRIM
     Indication: Lymphodepletion
     Route: 065
  51. COTRIMOXAZOLE [Concomitant]
     Active Substance: SULFAMETHOXAZOLE\TRIMETHOPRIM
     Route: 065
  52. COTRIMOXAZOLE [Concomitant]
     Active Substance: SULFAMETHOXAZOLE\TRIMETHOPRIM
     Dosage: 15 MG/KG, QD,(THREE TIMES WEEKLY FROM DAY +28)
     Route: 065
  53. COTRIMOXAZOLE [Concomitant]
     Active Substance: SULFAMETHOXAZOLE\TRIMETHOPRIM
     Dosage: 15 MG/KG, QD THREE TIMES WEEKLY FROM DAY +28
     Route: 065
  54. COTRIMOXAZOLE [Concomitant]
     Active Substance: SULFAMETHOXAZOLE\TRIMETHOPRIM
     Route: 065
  55. COTRIMOXAZOLE [Concomitant]
     Active Substance: SULFAMETHOXAZOLE\TRIMETHOPRIM
     Route: 065
  56. FOSCARNET [Concomitant]
     Active Substance: FOSCARNET
     Indication: Cytomegalovirus infection reactivation
     Dosage: 180 MG/KG, QD
     Route: 065
  57. VANCOMYCIN [Concomitant]
     Active Substance: VANCOMYCIN
     Indication: Staphylococcal bacteraemia
     Route: 065
  58. VANCOMYCIN [Concomitant]
     Active Substance: VANCOMYCIN
     Route: 065
  59. VANCOMYCIN [Concomitant]
     Active Substance: VANCOMYCIN
     Route: 065
  60. MEROPENEM [Concomitant]
     Active Substance: MEROPENEM
     Indication: Febrile neutropenia
     Route: 065
  61. MEROPENEM [Concomitant]
     Active Substance: MEROPENEM
     Route: 065
  62. MEROPENEM [Concomitant]
     Active Substance: MEROPENEM
     Route: 065
  63. GANCICLOVIR [Concomitant]
     Active Substance: GANCICLOVIR
     Indication: Prophylaxis
     Dosage: 5 MG/KG, QD
     Route: 065
  64. GANCICLOVIR [Concomitant]
     Active Substance: GANCICLOVIR
     Indication: Cytomegalovirus infection reactivation
  65. CIDOFOVIR [Concomitant]
     Active Substance: CIDOFOVIR
     Indication: Infection reactivation
     Dosage: 5 MG/KG, QD
     Route: 043
  66. CIDOFOVIR [Concomitant]
     Active Substance: CIDOFOVIR
     Indication: BK virus infection
  67. CIDOFOVIR [Concomitant]
     Active Substance: CIDOFOVIR
     Indication: Cytomegalovirus infection reactivation
  68. PENICILLIN V [Concomitant]
     Active Substance: PENICILLIN V
     Indication: Infection prophylaxis
     Dosage: 60,000 UNITS/KG, QD
     Route: 065
  69. PENICILLIN V [Concomitant]
     Active Substance: PENICILLIN V
     Indication: Prophylaxis
     Route: 065
  70. PENICILLIN V [Concomitant]
     Active Substance: PENICILLIN V
     Indication: Infection prophylaxis
     Route: 065
  71. PENICILLIN V [Concomitant]
     Active Substance: PENICILLIN V
     Route: 065
  72. PENICILLIN V [Concomitant]
     Active Substance: PENICILLIN V
     Route: 065
  73. PENICILLIN V [Concomitant]
     Active Substance: PENICILLIN V
     Route: 065
  74. FLUCONAZOLE [Concomitant]
     Active Substance: FLUCONAZOLE
     Indication: Infection prophylaxis
     Dosage: 8 MG/KG, QD
     Route: 065
  75. FLUCONAZOLE [Concomitant]
     Active Substance: FLUCONAZOLE
     Indication: Infection prophylaxis
     Dosage: 8 MG/KG, QD
     Route: 065
  76. POSACONAZOLE [Concomitant]
     Active Substance: POSACONAZOLE
     Indication: Febrile neutropenia
     Route: 065
  77. POSACONAZOLE [Concomitant]
     Active Substance: POSACONAZOLE
     Route: 065
  78. POSACONAZOLE [Concomitant]
     Active Substance: POSACONAZOLE
     Route: 065
  79. HUMAN IMMUNOGLOBULIN G [Concomitant]
     Active Substance: HUMAN IMMUNOGLOBULIN G
     Indication: Infection prophylaxis
     Route: 042
  80. HUMAN IMMUNOGLOBULIN G [Concomitant]
     Active Substance: HUMAN IMMUNOGLOBULIN G
     Route: 042
  81. HUMAN IMMUNOGLOBULIN G [Concomitant]
     Active Substance: HUMAN IMMUNOGLOBULIN G
     Route: 042

REACTIONS (24)
  - BK polyomavirus test positive [Unknown]
  - Adenovirus reactivation [Unknown]
  - Cytomegalovirus infection reactivation [Unknown]
  - Cystitis haemorrhagic [Recovering/Resolving]
  - Herpes simplex reactivation [Recovered/Resolved]
  - Epstein-Barr virus infection reactivation [Unknown]
  - Viral haemorrhagic cystitis [Recovered/Resolved]
  - Infection reactivation [Recovered/Resolved]
  - Gastrointestinal viral infection [Recovered/Resolved]
  - Febrile neutropenia [Recovered/Resolved]
  - Brain abscess [Recovered/Resolved]
  - Neurological symptom [Recovered/Resolved]
  - Herpes simplex test positive [Unknown]
  - Cerebral toxoplasmosis [Unknown]
  - Staphylococcal bacteraemia [Recovered/Resolved]
  - Seizure [Recovered/Resolved]
  - Pyrexia [Recovered/Resolved]
  - Headache [Recovered/Resolved]
  - Nausea [Recovered/Resolved]
  - Oral herpes [Recovered/Resolved]
  - Off label use [Unknown]
  - Off label use [Unknown]
  - Off label use [Unknown]
  - Product use issue [Unknown]
